FAERS Safety Report 22187494 (Version 1)
Quarter: 2023Q2

REPORT INFORMATION
  Report Type: Spontaneous
  Country: FR (occurrence: FR)
  Receive Date: 20230407
  Receipt Date: 20230407
  Transmission Date: 20230721
  Serious: Yes (Other)
  Sender: FDA-Public Use
  Company Number: None

PATIENT
  Age: 28 Year
  Sex: Male
  Weight: 65 kg

DRUGS (4)
  1. FLUCYTOSINE [Suspect]
     Active Substance: FLUCYTOSINE
     Indication: Product used for unknown indication
     Dosage: INCONNUE
     Route: 065
     Dates: start: 202209, end: 20220920
  2. PYROVALERONE [Suspect]
     Active Substance: PYROVALERONE
     Indication: Product used for unknown indication
     Dosage: INCONNUE
     Route: 042
     Dates: start: 202209, end: 20220920
  3. TILIDINE [Suspect]
     Active Substance: TILIDINE
     Indication: Product used for unknown indication
     Dosage: INCONNUE
     Route: 065
     Dates: start: 202209, end: 20220920
  4. NIFLUMIC ACID [Suspect]
     Active Substance: NIFLUMIC ACID
     Indication: Product used for unknown indication
     Dosage: INCONNUE
     Route: 065
     Dates: start: 202209, end: 20220920

REACTIONS (3)
  - Agitation [Recovered/Resolved]
  - Drug abuse [Recovered/Resolved]
  - Hallucination [Recovered/Resolved]

NARRATIVE: CASE EVENT DATE: 20220920
